FAERS Safety Report 7544446-1 (Version None)
Quarter: 2011Q2

REPORT INFORMATION
  Report Type: 
  Country: None (occurrence: None)
  Receive Date: 20110613
  Receipt Date: 20090611
  Transmission Date: 20111010
  Serious: Yes (Disabling)
  Sender: FDA-Public Use
  Company Number: PHHY2009CL23174

PATIENT
  Age: 90 Year
  Sex: Male

DRUGS (3)
  1. STALEVO 100 [Suspect]
     Dosage: UNK
  2. VALSARTAN [Suspect]
     Indication: HYPERTENSION
     Dosage: 80 MG, QD
     Dates: start: 20050101
  3. OMEPRAZOLE [Concomitant]
     Dosage: UNK

REACTIONS (1)
  - GENERAL PHYSICAL HEALTH DETERIORATION [None]
